FAERS Safety Report 8509673-5 (Version None)
Quarter: 2012Q3

REPORT INFORMATION
  Report Type: 
  Country: None (occurrence: None)
  Receive Date: 20120713
  Receipt Date: 20120709
  Transmission Date: 20120928
  Serious: Yes (Death, Hospitalization, Disabling)
  Sender: FDA-Public Use
  Company Number: US-JNJFOC-20120702548

PATIENT
  Sex: Female
  Weight: 79 kg

DRUGS (13)
  1. REGULAR INSULIN [Concomitant]
     Dosage: SLIDING SCALE
  2. XARELTO [Suspect]
     Route: 048
     Dates: start: 20120117, end: 20120119
  3. LEVEMIR [Concomitant]
     Dosage: 20 UNITS TWICE DAILY
     Route: 058
  4. HYDRALAZINE HYDROCHLORIDE [Concomitant]
     Indication: BLOOD PRESSURE SYSTOLIC
     Dosage: AS NEEDED
     Route: 042
  5. XARELTO [Suspect]
     Indication: ATRIAL FIBRILLATION
     Route: 048
     Dates: start: 20111201
  6. ACETAMINOPHEN [Concomitant]
     Dosage: AS NEEDED
     Route: 048
  7. XARELTO [Suspect]
     Indication: CEREBROVASCULAR ACCIDENT PROPHYLAXIS
     Route: 048
     Dates: start: 20111201
  8. MILK OF MAGNESIA TAB [Concomitant]
     Indication: CONSTIPATION
     Route: 048
  9. PROTONIX [Concomitant]
     Route: 048
  10. MAGNESIUM HYDROXIDE TAB [Concomitant]
     Indication: DYSPEPSIA
     Dosage: AS NEEDED
     Route: 048
  11. CIPROFLOXACIN HCL [Concomitant]
     Dosage: 400 MG/200 ML EVERY 12 HOURS
     Route: 042
  12. TEKTURNA [Concomitant]
     Route: 048
  13. XARELTO [Suspect]
     Route: 048
     Dates: start: 20120117, end: 20120119

REACTIONS (10)
  - COMMUNICATION DISORDER [None]
  - GRAND MAL CONVULSION [None]
  - LOSS OF CONSCIOUSNESS [None]
  - DYSPHAGIA [None]
  - DEATH [None]
  - SUBDURAL HAEMORRHAGE [None]
  - LOWER GASTROINTESTINAL HAEMORRHAGE [None]
  - CEREBROVASCULAR ACCIDENT [None]
  - THROMBOSIS [None]
  - UNRESPONSIVE TO STIMULI [None]
